FAERS Safety Report 21483512 (Version 1)
Quarter: 2022Q4

REPORT INFORMATION
  Report Type: Spontaneous
  Country: US (occurrence: US)
  Receive Date: 20221020
  Receipt Date: 20221020
  Transmission Date: 20230112
  Serious: No
  Sender: FDA-Public Use
  Company Number: US-CELLTRION INC.-2022US003575

PATIENT

DRUGS (1)
  1. INFLECTRA [Suspect]
     Active Substance: INFLIXIMAB-DYYB
     Indication: Product used for unknown indication
     Dosage: 5 MG/KG, EVERY 8 WEEKS
     Route: 065

REACTIONS (3)
  - Unevaluable event [Unknown]
  - Treatment delayed [Unknown]
  - Product prescribing error [Unknown]
